FAERS Safety Report 4562710-5 (Version None)
Quarter: 2005Q1

REPORT INFORMATION
  Report Type: 
  Country: None (occurrence: None)
  Receive Date: 20050124
  Receipt Date: 20050110
  Transmission Date: 20050727
  Serious: Yes (Hospitalization, Other)
  Sender: FDA-Public Use
  Company Number: 2005-00103

PATIENT
  Sex: Male

DRUGS (1)
  1. OXYTROL [Suspect]
     Dosage: 1 PATCH, DAILY, TRANSDERMAL
     Route: 062

REACTIONS (4)
  - DIZZINESS [None]
  - MEDICATION ERROR [None]
  - OVERDOSE [None]
  - SELF-MEDICATION [None]
